FAERS Safety Report 5354689-3 (Version None)
Quarter: 2007Q2

REPORT INFORMATION
  Report Type: 
  Country: None (occurrence: None)
  Receive Date: 20070612
  Receipt Date: 20070606
  Transmission Date: 20071010
  Serious: Yes (Hospitalization)
  Sender: FDA-Public Use
  Company Number: US-MERCK-0706USA01081

PATIENT
  Age: 68 Year
  Sex: Male

DRUGS (1)
  1. ZETIA [Suspect]
     Indication: BLOOD CHOLESTEROL INCREASED
     Route: 048
     Dates: start: 20030101, end: 20070603

REACTIONS (3)
  - RASH ERYTHEMATOUS [None]
  - STAPHYLOCOCCAL SKIN INFECTION [None]
  - URTICARIA [None]
